FAERS Safety Report 9524443 (Version 2)
Quarter: 2013Q4

REPORT INFORMATION
  Report Type: Spontaneous
  Country: US (occurrence: US)
  Receive Date: 20130916
  Receipt Date: 20131008
  Transmission Date: 20140711
  Serious: Yes (Other)
  Sender: FDA-Public Use
  Company Number: US-PFIZER INC-2013265519

PATIENT
  Age: 50 Year
  Sex: Female

DRUGS (2)
  1. PRISTIQ [Suspect]
     Dosage: 100 MG, UNK
  2. PRISTIQ [Suspect]
     Dosage: 25 MG, UNK

REACTIONS (4)
  - Drug dependence [Not Recovered/Not Resolved]
  - Anxiety [Unknown]
  - Feeling jittery [Unknown]
  - Dizziness [Unknown]
